FAERS Safety Report 12083866 (Version 7)
Quarter: 2016Q3

REPORT INFORMATION
  Report Type: Spontaneous
  Country: BR (occurrence: BR)
  Receive Date: 20160217
  Receipt Date: 20160923
  Transmission Date: 20161109
  Serious: Yes (Hospitalization, Other)
  Sender: FDA-Public Use
  Company Number: BR-JNJFOC-20160212313

PATIENT
  Age: 15 Year
  Sex: Male
  Weight: 35 kg

DRUGS (17)
  1. REMICADE [Suspect]
     Active Substance: INFLIXIMAB
     Indication: CROHN^S DISEASE
     Route: 042
     Dates: start: 20160220
  2. REMICADE [Suspect]
     Active Substance: INFLIXIMAB
     Indication: CROHN^S DISEASE
     Route: 042
     Dates: start: 20160212
  3. REMICADE [Suspect]
     Active Substance: INFLIXIMAB
     Indication: CROHN^S DISEASE
     Route: 042
     Dates: start: 20151223
  4. PREDNISONE. [Concomitant]
     Active Substance: PREDNISONE
     Route: 065
     Dates: end: 201512
  5. NUTRICAL D [Concomitant]
     Route: 065
  6. DEPURA [Concomitant]
     Active Substance: CHOLECALCIFEROL
     Route: 065
  7. REMICADE [Suspect]
     Active Substance: INFLIXIMAB
     Indication: CROHN^S DISEASE
     Route: 042
     Dates: start: 20160730
  8. REMICADE [Suspect]
     Active Substance: INFLIXIMAB
     Indication: CROHN^S DISEASE
     Route: 042
     Dates: start: 201608
  9. RISEDRONATE SODIUM. [Concomitant]
     Active Substance: RISEDRONATE SODIUM
     Route: 065
  10. REMICADE [Suspect]
     Active Substance: INFLIXIMAB
     Indication: CROHN^S DISEASE
     Route: 042
     Dates: start: 20150824
  11. REMICADE [Suspect]
     Active Substance: INFLIXIMAB
     Indication: CROHN^S DISEASE
     Route: 042
     Dates: start: 20160506
  12. REMICADE [Suspect]
     Active Substance: INFLIXIMAB
     Indication: CROHN^S DISEASE
     Dosage: 3RD INFUSION
     Route: 042
     Dates: start: 2015
  13. ALPRAZOLAM. [Concomitant]
     Active Substance: ALPRAZOLAM
     Route: 065
  14. MAXXI D3 [Concomitant]
     Route: 065
  15. REMICADE [Suspect]
     Active Substance: INFLIXIMAB
     Indication: CROHN^S DISEASE
     Route: 042
     Dates: start: 201603
  16. AZATHIOPRINE. [Concomitant]
     Active Substance: AZATHIOPRINE
     Route: 065
  17. ESCITALOPRAM [Concomitant]
     Active Substance: ESCITALOPRAM OXALATE
     Route: 065

REACTIONS (13)
  - Drug ineffective [Unknown]
  - Malnutrition [Unknown]
  - Intestinal resection [Unknown]
  - Off label use [Unknown]
  - Crohn^s disease [Unknown]
  - Depression [Recovering/Resolving]
  - Weight decreased [Recovering/Resolving]
  - Product use issue [Unknown]
  - Vomiting [Unknown]
  - Pyrexia [Recovered/Resolved]
  - Osteoporosis [Recovering/Resolving]
  - Gastrointestinal disorder [Unknown]
  - Influenza [Unknown]

NARRATIVE: CASE EVENT DATE: 20150824
